FAERS Safety Report 25892690 (Version 1)
Quarter: 2025Q4

REPORT INFORMATION
  Report Type: Spontaneous
  Country: US (occurrence: US)
  Receive Date: 20251007
  Receipt Date: 20251007
  Transmission Date: 20260118
  Serious: No
  Sender: TEVA
  Company Number: US-TEVA-VS-3378553

PATIENT
  Age: 77 Year
  Sex: Female

DRUGS (1)
  1. LENALIDOMIDE [Suspect]
     Active Substance: LENALIDOMIDE
     Indication: Plasma cell myeloma
     Dosage: 21/BO (TEVA)
     Route: 065

REACTIONS (4)
  - Swelling face [Unknown]
  - Rash [Unknown]
  - No reaction on previous exposure to drug [Unknown]
  - Product quality issue [Unknown]
